FAERS Safety Report 5414980-9 (Version None)
Quarter: 2007Q3

REPORT INFORMATION
  Report Type: 
  Country: None (occurrence: None)
  Receive Date: 20070815
  Receipt Date: 20070810
  Transmission Date: 20080115
  Serious: Yes (Hospitalization)
  Sender: FDA-Public Use
  Company Number: US-BRISTOL-MYERS SQUIBB COMPANY-13725395

PATIENT
  Age: 56 Year
  Sex: Male

DRUGS (5)
  1. CISPLATIN [Suspect]
     Indication: GASTRIC CANCER
     Route: 041
     Dates: start: 20070206, end: 20070206
  2. FLUOROURACIL [Suspect]
     Indication: GASTRIC CANCER
     Dosage: DAY 1-5 EVERY 28 DAYS
     Route: 041
     Dates: start: 20070206, end: 20070211
  3. HYDROCHLOROTHIAZIDE [Concomitant]
     Indication: HYPERTENSION
     Route: 042
  4. AVAPRO [Concomitant]
     Indication: HYPERTENSION
  5. OXYCODONE HCL [Concomitant]
     Indication: PAIN
     Route: 048

REACTIONS (2)
  - INFECTION [None]
  - TUMOUR ASSOCIATED FEVER [None]
